FAERS Safety Report 21842859 (Version 1)
Quarter: 2023Q1

REPORT INFORMATION
  Report Type: Report from Study
  Country: FR (occurrence: FR)
  Receive Date: 20230110
  Receipt Date: 20230110
  Transmission Date: 20230418
  Serious: Yes (Other)
  Sender: FDA-Public Use
  Company Number: FR-PFIZER INC-PV202300003262

PATIENT
  Age: 36 Year
  Sex: Female
  Weight: 64 kg

DRUGS (3)
  1. TALZENNA [Suspect]
     Active Substance: TALAZOPARIB TOSYLATE
     Indication: Breast cancer metastatic
     Dosage: 1 MG, DAILY
     Route: 048
     Dates: start: 20210929, end: 20220110
  2. TALZENNA [Suspect]
     Active Substance: TALAZOPARIB TOSYLATE
     Dosage: 0.75 MG, DAILY
     Route: 048
     Dates: start: 20220110, end: 20220301
  3. TRIPTORELIN [Concomitant]
     Active Substance: TRIPTORELIN
     Indication: Hormone therapy
     Dosage: UNK
     Route: 058
     Dates: start: 20201205

REACTIONS (1)
  - Anaemia [Unknown]

NARRATIVE: CASE EVENT DATE: 20220207
